FAERS Safety Report 5202550-7 (Version None)
Quarter: 2006Q4

REPORT INFORMATION
  Report Type: 
  Country: None (occurrence: None)
  Receive Date: 20061016
  Receipt Date: 20060824
  Transmission Date: 20070319
  Serious: No
  Sender: FDA-Public Use
  Company Number: 2006SP003112

PATIENT
  Age: 70 Year
  Sex: Male
  Weight: 90.7194 kg

DRUGS (12)
  1. LUNESTA [Suspect]
     Indication: INSOMNIA
     Dosage: 3 MG;HS;ORAL
     Route: 048
     Dates: start: 20060823
  2. INSULIN [Concomitant]
  3. METOPROLOL SUCCINATE [Concomitant]
  4. ENALAPRIL MALEATE [Concomitant]
  5. KLOR-CON [Concomitant]
  6. LASIX [Concomitant]
  7. NAPROSYN [Concomitant]
  8. TEMAZEPAM [Concomitant]
  9. SIMVASTATIN [Concomitant]
  10. ASPIRIN [Concomitant]
  11. FOLIC ACID [Concomitant]
  12. DOCUSATE [Concomitant]

REACTIONS (1)
  - INITIAL INSOMNIA [None]
